FAERS Safety Report 15472851 (Version 1)
Quarter: 2018Q4

REPORT INFORMATION
  Report Type: Spontaneous
  Country: US (occurrence: US)
  Receive Date: 20181008
  Receipt Date: 20181008
  Transmission Date: 20190205
  Serious: Yes (Life-Threatening, Other)
  Sender: FDA-Public Use
  Company Number: US-LUPIN PHARMACEUTICALS INC.-2018-06899

PATIENT
  Age: 81 Year
  Sex: Female

DRUGS (4)
  1. LINEZOLID. [Suspect]
     Active Substance: LINEZOLID
     Indication: ENTEROCOCCAL INFECTION
  2. MEROPENEM. [Concomitant]
     Active Substance: MEROPENEM
     Indication: PATHOGEN RESISTANCE
  3. LINEZOLID. [Suspect]
     Active Substance: LINEZOLID
     Indication: ABSCESS LIMB
     Dosage: UNK
     Route: 042
  4. MEROPENEM. [Concomitant]
     Active Substance: MEROPENEM
     Indication: URINARY TRACT INFECTION
     Dosage: UNK
     Route: 042

REACTIONS (5)
  - Toxicity to various agents [Recovered/Resolved]
  - Lipase increased [Unknown]
  - Lactic acidosis [Recovered/Resolved]
  - Amylase increased [Unknown]
  - Respiratory distress [Unknown]
